FAERS Safety Report 9915850 (Version 1)
Quarter: 2014Q1

REPORT INFORMATION
  Report Type: Spontaneous
  Country: IN (occurrence: None)
  Receive Date: 20140218
  Receipt Date: 20140218
  Transmission Date: 20141002
  Serious: Yes (Other)
  Sender: FDA-Public Use
  Company Number: AUR-APL-2014-01630

PATIENT
  Age: 22 Year
  Sex: Male

DRUGS (3)
  1. QUETIAPINE (QUETIAPINE) [Suspect]
     Indication: PRODUCT USED FOR UNKNOWN INDICATION
     Dosage: (100 MG, 1 D), ORAL
     Route: 048
  2. VALPROATE SODIUM (VALPROATE SODIUM) [Concomitant]
  3. CHLORPROMAZINE (CHLORPROMAZINE) [Concomitant]

REACTIONS (7)
  - Drug dependence [None]
  - Irritability [None]
  - Drug abuse [None]
  - Drug ineffective [None]
  - Insomnia [None]
  - Self-medication [None]
  - Drug dependence [None]
